FAERS Safety Report 24046585 (Version 1)
Quarter: 2024Q3

REPORT INFORMATION
  Report Type: Spontaneous
  Country: US (occurrence: US)
  Receive Date: 20240703
  Receipt Date: 20240703
  Transmission Date: 20241017
  Serious: No
  Sender: SANOFI AVENTIS
  Company Number: US-SA-SAC20240627000889

PATIENT
  Sex: Female
  Weight: 59.42 kg

DRUGS (6)
  1. DUPIXENT [Suspect]
     Active Substance: DUPILUMAB
     Indication: Seasonal allergy
     Dosage: 300 MG, QOW
     Route: 058
  2. VITAMINS [Concomitant]
     Active Substance: VITAMINS
  3. CALCIUM CITRATE\CHOLECALCIFEROL [Concomitant]
     Active Substance: CALCIUM CITRATE\CHOLECALCIFEROL
  4. CALCITRIOL [Concomitant]
     Active Substance: CALCITRIOL
  5. LEVOTHYROXINE SODIUM [Concomitant]
     Active Substance: LEVOTHYROXINE SODIUM
  6. ZYRTEC [Concomitant]
     Active Substance: CETIRIZINE HYDROCHLORIDE

REACTIONS (2)
  - Injection site pain [Unknown]
  - Product use in unapproved indication [Unknown]
